FAERS Safety Report 23656917 (Version 3)
Quarter: 2025Q3

REPORT INFORMATION
  Report Type: Spontaneous
  Country: US (occurrence: US)
  Receive Date: 20240321
  Receipt Date: 20250917
  Transmission Date: 20251021
  Serious: Yes (Other)
  Sender: CSL BEHRING
  Company Number: US-BEH-2024169746

PATIENT
  Sex: Male

DRUGS (18)
  1. IDELVION [Suspect]
     Active Substance: COAGULATION FACTOR IX RECOMBINANT HUMAN
     Indication: Factor IX deficiency
     Route: 042
     Dates: start: 202004
  2. IDELVION [Suspect]
     Active Substance: COAGULATION FACTOR IX RECOMBINANT HUMAN
     Indication: Factor IX deficiency
     Route: 042
     Dates: start: 202004
  3. IDELVION [Suspect]
     Active Substance: COAGULATION FACTOR IX RECOMBINANT HUMAN
     Route: 042
     Dates: start: 202004
  4. IDELVION [Suspect]
     Active Substance: COAGULATION FACTOR IX RECOMBINANT HUMAN
     Route: 042
     Dates: start: 202004
  5. IDELVION [Suspect]
     Active Substance: COAGULATION FACTOR IX RECOMBINANT HUMAN
     Route: 042
     Dates: start: 202004
  6. IDELVION [Suspect]
     Active Substance: COAGULATION FACTOR IX RECOMBINANT HUMAN
     Route: 042
     Dates: start: 202004
  7. IDELVION [Suspect]
     Active Substance: COAGULATION FACTOR IX RECOMBINANT HUMAN
     Indication: Factor IX deficiency
     Route: 042
     Dates: start: 202004
  8. IDELVION [Suspect]
     Active Substance: COAGULATION FACTOR IX RECOMBINANT HUMAN
     Indication: Factor IX deficiency
     Route: 042
     Dates: start: 202004
  9. IDELVION [Suspect]
     Active Substance: COAGULATION FACTOR IX RECOMBINANT HUMAN
     Route: 042
     Dates: start: 202004
  10. IDELVION [Suspect]
     Active Substance: COAGULATION FACTOR IX RECOMBINANT HUMAN
     Route: 042
     Dates: start: 202004
  11. IDELVION [Suspect]
     Active Substance: COAGULATION FACTOR IX RECOMBINANT HUMAN
     Route: 042
     Dates: start: 202004
  12. IDELVION [Suspect]
     Active Substance: COAGULATION FACTOR IX RECOMBINANT HUMAN
     Route: 042
     Dates: start: 202004
  13. IDELVION [Suspect]
     Active Substance: COAGULATION FACTOR IX RECOMBINANT HUMAN
     Dosage: 7500 UNITS (6750-8250), QOW
     Route: 042
     Dates: start: 202004
  14. IDELVION [Suspect]
     Active Substance: COAGULATION FACTOR IX RECOMBINANT HUMAN
     Dosage: 7500 UNITS (6750-8250), QOW
     Route: 042
     Dates: start: 202004
  15. IDELVION [Suspect]
     Active Substance: COAGULATION FACTOR IX RECOMBINANT HUMAN
     Route: 042
     Dates: start: 202004
  16. IDELVION [Suspect]
     Active Substance: COAGULATION FACTOR IX RECOMBINANT HUMAN
     Route: 042
     Dates: start: 202004
  17. IDELVION [Suspect]
     Active Substance: COAGULATION FACTOR IX RECOMBINANT HUMAN
     Route: 042
     Dates: start: 202004
  18. IDELVION [Suspect]
     Active Substance: COAGULATION FACTOR IX RECOMBINANT HUMAN
     Route: 042
     Dates: start: 202004

REACTIONS (5)
  - Contusion [Unknown]
  - Joint swelling [Recovered/Resolved]
  - Contusion [Unknown]
  - Injection site hypersensitivity [Unknown]
  - Product dose omission in error [Unknown]
